FAERS Safety Report 25360075 (Version 5)
Quarter: 2025Q4

REPORT INFORMATION
  Report Type: Spontaneous
  Country: JP (occurrence: JP)
  Receive Date: 20250527
  Receipt Date: 20251222
  Transmission Date: 20260118
  Serious: Yes (Death, Other)
  Sender: TAKEDA
  Company Number: JP-TAKEDA-2025TJP004973

PATIENT
  Sex: Male
  Weight: 4.5 kg

DRUGS (16)
  1. CEPROTIN [Suspect]
     Active Substance: PROTEIN C
     Indication: Protein C deficiency
     Dosage: 500 INTERNATIONAL UNIT
  2. CEPROTIN [Suspect]
     Active Substance: PROTEIN C
     Dosage: 330 INTERNATIONAL UNIT
  3. CEPROTIN [Suspect]
     Active Substance: PROTEIN C
     Dosage: 330 INTERNATIONAL UNIT
  4. CEPROTIN [Suspect]
     Active Substance: PROTEIN C
     Dosage: 330 INTERNATIONAL UNIT
  5. CEPROTIN [Suspect]
     Active Substance: PROTEIN C
     Dosage: 250 INTERNATIONAL UNIT
  6. CEPROTIN [Suspect]
     Active Substance: PROTEIN C
     Dosage: 260 INTERNATIONAL UNIT, BID
     Dates: start: 20240926, end: 20240930
  7. CEPROTIN [Suspect]
     Active Substance: PROTEIN C
     Dosage: 260 INTERNATIONAL UNIT, QD
     Dates: start: 20241001, end: 20241007
  8. FRESH FROZEN PLASMA [Concomitant]
     Active Substance: HUMAN PLASMA
     Indication: Protein C deficiency
     Dosage: 60 MILLILITER
  9. WARFARIN [Concomitant]
     Active Substance: WARFARIN
     Indication: Protein C deficiency
     Dosage: 0.4 MILLIGRAM
  10. BACLOFEN [Concomitant]
     Active Substance: BACLOFEN
     Dosage: UNK
  11. GABAPENTIN [Concomitant]
     Active Substance: GABAPENTIN
     Dosage: UNK
  12. PHENOBARBITAL [Concomitant]
     Active Substance: PHENOBARBITAL
     Dosage: UNK
  13. FUROSEMIDE [Concomitant]
     Active Substance: FUROSEMIDE
     Dosage: UNK
  14. SPIRONOLACTONE [Concomitant]
     Active Substance: SPIRONOLACTONE
     Dosage: UNK
  15. K.C.L. [Concomitant]
     Dosage: UNK
  16. SODIUM CHLORIDE [Concomitant]
     Active Substance: SODIUM CHLORIDE
     Dosage: UNK

REACTIONS (1)
  - Respiratory failure [Fatal]

NARRATIVE: CASE EVENT DATE: 20250211
